FAERS Safety Report 7729077-2 (Version None)
Quarter: 2011Q3

REPORT INFORMATION
  Report Type: 
  Country: None (occurrence: None)
  Receive Date: 20110831
  Receipt Date: 20110831
  Transmission Date: 20111222
  Serious: Yes (Hospitalization)
  Sender: FDA-Public Use
  Company Number: None

PATIENT
  Sex: Female
  Weight: 60.3284 kg

DRUGS (1)
  1. FLUCONAZOLE [Suspect]
     Indication: FUNGAL INFECTION
     Dosage: 150 MG ONE (ONE PILL)
     Dates: start: 20110802

REACTIONS (7)
  - NAUSEA [None]
  - HEART RATE IRREGULAR [None]
  - TREMOR [None]
  - PAIN IN EXTREMITY [None]
  - DIARRHOEA [None]
  - JAW DISORDER [None]
  - FEELING COLD [None]
